FAERS Safety Report 4382751-0 (Version None)
Quarter: 2004Q2

REPORT INFORMATION
  Report Type: 
  Country: None (occurrence: None)
  Receive Date: 20040622
  Receipt Date: 20040622
  Transmission Date: 20050107
  Serious: Yes (Hospitalization)
  Sender: FDA-Public Use
  Company Number: None

PATIENT
  Sex: Female
  Weight: 68.0396 kg

DRUGS (11)
  1. CRESTOR [Suspect]
     Indication: HYPERLIPIDAEMIA
     Dosage: 1 DAILY
     Dates: start: 20040421, end: 20040609
  2. CELLCEPT [Concomitant]
  3. BACTRIM [Concomitant]
  4. PROTONIX [Concomitant]
  5. NORVASC [Concomitant]
  6. METOPROLOL TARTRATE [Concomitant]
  7. CALCIUM CARBONATE [Concomitant]
  8. POTASSIUM PHOSPHATES [Concomitant]
  9. HUMALOG [Concomitant]
  10. LANTUS [Concomitant]
  11. PREDNISONE [Concomitant]

REACTIONS (3)
  - DEHYDRATION [None]
  - MYALGIA [None]
  - PANCREATITIS [None]
